FAERS Safety Report 4900394-4 (Version None)
Quarter: 2006Q1

REPORT INFORMATION
  Report Type: 
  Country: None (occurrence: None)
  Receive Date: 20060203
  Receipt Date: 20060126
  Transmission Date: 20060701
  Serious: Yes (Hospitalization)
  Sender: FDA-Public Use
  Company Number: US-JNJFOC-20060106067

PATIENT
  Sex: Female
  Weight: 58.06 kg

DRUGS (12)
  1. DURAGESIC-100 [Suspect]
     Route: 062
  2. DILANTIN [Concomitant]
     Route: 048
  3. DILANTIN [Concomitant]
     Route: 048
  4. PHENOBARBITAL TAB [Concomitant]
     Route: 048
  5. PREVACID [Concomitant]
     Indication: GASTRIC DISORDER
     Route: 048
  6. ZOLOFT [Concomitant]
     Indication: DEPRESSION
     Route: 048
  7. SINGULAIR [Concomitant]
     Indication: ASTHMA
     Route: 048
  8. BENTYL [Concomitant]
     Indication: GASTRIC DISORDER
     Route: 048
  9. ADVAIR DISKUS 100/50 [Concomitant]
     Route: 048
  10. ADVAIR DISKUS 100/50 [Concomitant]
     Indication: ASTHMA
     Route: 048
  11. ALBUTEROL [Concomitant]
     Indication: ASTHMA
     Route: 048
  12. NITROGLYCERIN [Concomitant]
     Indication: ANGINA PECTORIS
     Route: 048

REACTIONS (6)
  - ABDOMINAL DISCOMFORT [None]
  - BACK INJURY [None]
  - GASTROENTERITIS VIRAL [None]
  - INTESTINAL STRANGULATION [None]
  - LUMBAR VERTEBRAL FRACTURE [None]
  - NAUSEA [None]
